FAERS Safety Report 7549921-1 (Version None)
Quarter: 2011Q2

REPORT INFORMATION
  Report Type: 
  Country: None (occurrence: None)
  Receive Date: 20110615
  Receipt Date: 20110609
  Transmission Date: 20111010
  Serious: Yes (Other)
  Sender: FDA-Public Use
  Company Number: PHHY2011US50902

PATIENT
  Age: 25 Year
  Sex: Female

DRUGS (3)
  1. RADIATION THERAPY [Suspect]
     Indication: MALIGNANT MELANOMA
     Dosage: UNK, 600 CGY
  2. CYCLOPHOSPHAMIDE [Suspect]
     Indication: MALIGNANT MELANOMA
     Dosage: 60 MG/KG, 2 DOSES
  3. FLUDARABINE PHOSPHATE [Suspect]
     Indication: MALIGNANT MELANOMA
     Dosage: 25 MG/M2, 5 DOSES

REACTIONS (3)
  - BLOOD FOLLICLE STIMULATING HORMONE INCREASED [None]
  - MALIGNANT MELANOMA [None]
  - PREMATURE MENOPAUSE [None]
